APPROVED DRUG PRODUCT: AUROVELA 1.5/30
Active Ingredient: ETHINYL ESTRADIOL; NORETHINDRONE ACETATE
Strength: 0.03MG;1.5MG
Dosage Form/Route: TABLET;ORAL-21
Application: A207581 | Product #001 | TE Code: AB
Applicant: AUROBINDO PHARMA LTD
Approved: Jun 26, 2017 | RLD: No | RS: No | Type: RX